FAERS Safety Report 8513649-1 (Version None)
Quarter: 2012Q3

REPORT INFORMATION
  Report Type: 
  Country: None (occurrence: None)
  Receive Date: 20120717
  Receipt Date: 20120710
  Transmission Date: 20120928
  Serious: No
  Sender: FDA-Public Use
  Company Number: US-PFIZER INC-2012166285

PATIENT
  Sex: Female

DRUGS (13)
  1. ACETYLSALICYLIC ACID [Concomitant]
     Dosage: 81 MG, DAILY
  2. NEXIUM [Concomitant]
     Dosage: 40 MG, DAILY
  3. AGGRENOX [Concomitant]
     Dosage: 25/200MG, TWICE A DAY
  4. NASONEX [Concomitant]
     Dosage: UNK, DAILY
  5. NITROGLYCERIN [Concomitant]
     Indication: CHEST PAIN
     Dosage: UNK, AS NEEDED
     Route: 060
  6. OGEN [Concomitant]
     Dosage: 1.25 MG, DAILY
  7. ACTONEL [Concomitant]
     Dosage: 30 MG, WEEKLY
  8. DARVOCET-N 50 [Concomitant]
     Indication: HEADACHE
     Dosage: 100 UNK, AS NEEDED
  9. ATENOLOL [Concomitant]
     Dosage: 12.5 MG, DAILY
  10. LYRICA [Suspect]
     Dosage: 50 MG, 2X/DAY
     Route: 048
  11. LEVOTHROID [Concomitant]
     Dosage: 150 MG, DAILY
  12. XANAX [Concomitant]
     Indication: INSOMNIA
     Dosage: 0.5 MG, 1/2 TABLET EVERY NIGHT AS NEEDED
  13. DARVOCET-N 50 [Concomitant]
     Indication: NECK PAIN

REACTIONS (5)
  - HEADACHE [None]
  - SENSORY DISTURBANCE [None]
  - FALL [None]
  - BALANCE DISORDER [None]
  - HEAD INJURY [None]
